FAERS Safety Report 21058061 (Version 1)
Quarter: 2022Q3

REPORT INFORMATION
  Report Type: Spontaneous
  Country: GB (occurrence: GB)
  Receive Date: 20220708
  Receipt Date: 20220708
  Transmission Date: 20221027
  Serious: Yes (Death)
  Sender: FDA-Public Use
  Company Number: GB-MYLANLABS-2022M1051557

PATIENT
  Age: 15 Month
  Sex: Female

DRUGS (10)
  1. TEMOZOLOMIDE [Suspect]
     Active Substance: TEMOZOLOMIDE
     Indication: Glioma
     Dosage: UNK, CYCLE
     Route: 065
  2. CARBOPLATIN [Suspect]
     Active Substance: CARBOPLATIN
     Indication: Glioma
     Dosage: 15 MILLIGRAM/KILOGRAM, CYCLE;  BBSFOP CHEMOTHERAPY; 450 MG/M2/D IN A 1H....
     Route: 065
  3. PROCARBAZINE [Suspect]
     Active Substance: PROCARBAZINE
     Indication: Glioma
     Dosage: 4 MILLIGRAM/KILOGRAM, QD; BBSFOP CHEMOTHERAPY; 120 MG/M2/D ON DAYS 1-7
     Route: 048
  4. ETOPOSIDE [Suspect]
     Active Substance: ETOPOSIDE
     Indication: Glioma
     Dosage: 5 MILLIGRAM/KILOGRAM, QD; BBSFOP CHEMOTHERAPY; 150 MG/M2/D IN A 1H INFUSION...
     Route: 065
  5. CISPLATIN [Suspect]
     Active Substance: CISPLATIN
     Indication: Glioma
     Dosage: 1 MILLIGRAM/KILOGRAM, QD; BBSFOP CHEMOTHERAPY; 30 MG/M2/D IN A 3H INFUSION...
     Route: 065
  6. VINCRISTINE [Suspect]
     Active Substance: VINCRISTINE
     Indication: Glioma
     Dosage: 0.05 MILLIGRAM/KILOGRAM, QD; BBSFOP CHEMOTHERAPY; 1.5 MG/M2/D ...
     Route: 040
  7. CYCLOPHOSPHAMIDE [Suspect]
     Active Substance: CYCLOPHOSPHAMIDE
     Indication: Glioma
     Dosage: 50 MILLIGRAM/KILOGRAM, QD; BBSFOP CHEMOTHERAPY; 1500 MG/M2 IN A 1H....
     Route: 065
  8. MESNA [Concomitant]
     Active Substance: MESNA
     Indication: Product used for unknown indication
     Dosage: UNK, CYCLE; IN A 1H INFUSION WITH CYCLOPHOSPHAMIDE ON DAY 43
     Route: 065
  9. MANNITOL [Concomitant]
     Active Substance: MANNITOL
     Indication: Product used for unknown indication
     Dosage: UNK, CYCLE; 3H INFUSION ON DAYS 22 AND 23 WITH CISPLATIN
     Route: 065
  10. SALINE [Concomitant]
     Active Substance: SODIUM CHLORIDE
     Indication: Product used for unknown indication
     Dosage: UNK, CYCLE; 3H INFUSION ON DAYS 22 AND 23 WITH CISPLATIN
     Route: 065

REACTIONS (2)
  - Drug ineffective [Fatal]
  - Off label use [Unknown]
